FAERS Safety Report 17593318 (Version 1)
Quarter: 2020Q1

REPORT INFORMATION
  Report Type: Spontaneous
  Country: US (occurrence: US)
  Receive Date: 20200327
  Receipt Date: 20200327
  Transmission Date: 20200409
  Serious: No
  Sender: FDA-Public Use
  Company Number: US-TOPROL ACQUISITION LLC-2019-TOP-000698

PATIENT
  Sex: Female
  Weight: 84.81 kg

DRUGS (8)
  1. ATAVASTIN [Concomitant]
  2. BRILINTA [Concomitant]
     Active Substance: TICAGRELOR
     Indication: STENT PLACEMENT
  3. BRILINTA [Concomitant]
     Active Substance: TICAGRELOR
     Indication: ANGIOPLASTY
  4. BRILINTA [Concomitant]
     Active Substance: TICAGRELOR
     Indication: THROMBOSIS
  5. BRILINTA [Concomitant]
     Active Substance: TICAGRELOR
     Indication: MYOCARDIAL INFARCTION
     Dosage: UNK, BID
     Route: 048
     Dates: start: 20190622
  6. CELEXA [Concomitant]
     Active Substance: CITALOPRAM HYDROBROMIDE
     Dosage: 10 MG, BID
  7. ELIQUIS [Concomitant]
     Active Substance: APIXABAN
     Dosage: 5 MG, BID
  8. METOPROLOL SUCCINATE. [Suspect]
     Active Substance: METOPROLOL SUCCINATE
     Indication: PALPITATIONS
     Dosage: UNK
     Dates: end: 201907

REACTIONS (1)
  - Off label use [Recovered/Resolved]
